FAERS Safety Report 9181205 (Version 2)
Quarter: 2013Q2

REPORT INFORMATION
  Report Type: Spontaneous
  Country: US (occurrence: US)
  Receive Date: 20130322
  Receipt Date: 20130522
  Transmission Date: 20140414
  Serious: Yes (Death, Other)
  Sender: FDA-Public Use
  Company Number: US-PFIZER INC-2013092862

PATIENT
  Age: 57 Year
  Sex: Male

DRUGS (3)
  1. CHANTIX [Suspect]
     Dosage: UNK
     Dates: start: 20110201, end: 20110801
  2. CHANTIX [Suspect]
     Dosage: STARTING MONTH PACK
     Dates: start: 20110203
  3. CHANTIX [Suspect]
     Dosage: 1 MG (CONTINUING MONTH PACK)
     Dates: start: 20110531

REACTIONS (1)
  - Completed suicide [Fatal]
